FAERS Safety Report 7284328-6 (Version None)
Quarter: 2011Q1

REPORT INFORMATION
  Report Type: 
  Country: None (occurrence: None)
  Receive Date: 20110209
  Receipt Date: 20110131
  Transmission Date: 20110831
  Serious: Yes (Hospitalization)
  Sender: FDA-Public Use
  Company Number: US-ASTRAZENECA-2010SE35091

PATIENT
  Age: 68 Year
  Sex: Female

DRUGS (20)
  1. MIRTAZAPINE [Concomitant]
     Route: 048
  2. TIZANIDINE [Concomitant]
     Dosage: BID PRN
     Route: 048
  3. ADVAIR [Concomitant]
  4. GABAPENTIN [Concomitant]
     Route: 048
  5. RANITIDINE [Concomitant]
     Route: 048
  6. METFORMIN [Concomitant]
     Route: 048
  7. GELNIQUE [Concomitant]
     Dosage: APPLY TO SKIN SITE
  8. CYTOTEC [Concomitant]
     Route: 048
  9. OXYGEN [Concomitant]
  10. SPIRIVA [Concomitant]
     Dosage: ONE PUFF DAILY
  11. LIDODERM [Concomitant]
     Dosage: THREE PATCHES DAILY ON 12 HOURS OFF 12 HOURS
  12. LORATADINE [Concomitant]
  13. NEXIUM [Suspect]
     Route: 048
     Dates: start: 20091001
  14. OXYCODONE HCL [Concomitant]
     Indication: PAIN
     Dosage: EVERY FOUR HOURS AS REQUIRED
     Route: 048
  15. SYNTHROID [Concomitant]
     Route: 048
  16. NEXIUM [Suspect]
     Route: 048
  17. CLONAZEPAM [Concomitant]
  18. TRAZODONE HCL [Concomitant]
     Dosage: QHS PRN
     Route: 048
  19. FLEXERIL [Concomitant]
  20. PHENERAGAN [Concomitant]
     Indication: NAUSEA
     Route: 048

REACTIONS (21)
  - COMPUTERISED TOMOGRAM ABNORMAL [None]
  - GASTROOESOPHAGEAL REFLUX DISEASE [None]
  - SYSTEMIC LUPUS ERYTHEMATOSUS [None]
  - OBESITY [None]
  - HYPOXIA [None]
  - SJOGREN'S SYNDROME [None]
  - VISUAL IMPAIRMENT [None]
  - NEUROPATHY PERIPHERAL [None]
  - PARKINSON'S DISEASE [None]
  - BEDRIDDEN [None]
  - PNEUMONIA [None]
  - CHRONIC OBSTRUCTIVE PULMONARY DISEASE [None]
  - FIBROMYALGIA [None]
  - LUNG NEOPLASM [None]
  - MALAISE [None]
  - PAIN [None]
  - TYPE 2 DIABETES MELLITUS [None]
  - ASTHENIA [None]
  - URINARY TRACT INFECTION [None]
  - OEDEMA PERIPHERAL [None]
  - DYSURIA [None]
